FAERS Safety Report 20834090 (Version 1)
Quarter: 2022Q2

REPORT INFORMATION
  Report Type: Spontaneous
  Country: US (occurrence: US)
  Receive Date: 20220516
  Receipt Date: 20220516
  Transmission Date: 20220720
  Serious: No
  Sender: FDA-Public Use
  Company Number: US-ELI_LILLY_AND_COMPANY-US202205006271

PATIENT

DRUGS (4)
  1. FORTEO [Suspect]
     Active Substance: TERIPARATIDE
     Indication: Product used for unknown indication
     Dosage: 250 UG, UNKNOWN
     Route: 065
     Dates: start: 202107
  2. FORTEO [Suspect]
     Active Substance: TERIPARATIDE
     Indication: Product used for unknown indication
     Dosage: 250 UG, UNKNOWN
     Route: 065
     Dates: start: 202107
  3. FORTEO [Suspect]
     Active Substance: TERIPARATIDE
     Dosage: 250 UG, UNKNOWN
     Route: 065
  4. FORTEO [Suspect]
     Active Substance: TERIPARATIDE
     Dosage: 250 UG, UNKNOWN
     Route: 065

REACTIONS (1)
  - Injection site rash [Unknown]
